FAERS Safety Report 9164419 (Version 1)
Quarter: 2013Q1

REPORT INFORMATION
  Report Type: Spontaneous
  Country: FR (occurrence: None)
  Receive Date: 20130226
  Receipt Date: 20130226
  Transmission Date: 20140127
  Serious: Yes (Other)
  Sender: FDA-Public Use
  Company Number: 1606964

PATIENT
  Age: 69 Year
  Sex: Female

DRUGS (5)
  1. CARBOPLATIN [Suspect]
     Indication: OVARIAN CANCER METASTATIC
     Dosage: 527 MG MILLIGRAM(S), UNKNOWN, INTRAVENOUS DRIP
     Route: 041
     Dates: start: 20121101, end: 20121206
  2. EMEND [Concomitant]
  3. ZOPHREN [Concomitant]
  4. PREDNISONE [Concomitant]
  5. DOMPERIDONE [Concomitant]

REACTIONS (10)
  - Angioedema [None]
  - Drug intolerance [None]
  - Eyelid oedema [None]
  - Weight increased [None]
  - Erythema [None]
  - Pruritus [None]
  - Vertigo [None]
  - Nausea [None]
  - Neoplasm progression [None]
  - Bronchospasm [None]
